FAERS Safety Report 4392713-5 (Version None)
Quarter: 2004Q3

REPORT INFORMATION
  Report Type: 
  Country: None (occurrence: None)
  Receive Date: 20040702
  Receipt Date: 20040323
  Transmission Date: 20050211
  Serious: Yes (Other)
  Sender: FDA-Public Use
  Company Number: 2004UW05723

PATIENT
  Age: 81 Year
  Sex: Female
  Weight: 52.1637 kg

DRUGS (4)
  1. CRESTOR [Suspect]
     Indication: BLOOD CHOLESTEROL INCREASED
     Dosage: 10 MG DAILY; PO
     Route: 048
     Dates: start: 20040309, end: 20040323
  2. FOSAMAX [Concomitant]
  3. GLAUCOMA DROPS [Concomitant]
  4. HYPERTENSION MEDICATION [Concomitant]

REACTIONS (2)
  - CHROMATURIA [None]
  - MYALGIA [None]
